FAERS Safety Report 6619412-0 (Version None)
Quarter: 2010Q1

REPORT INFORMATION
  Report Type: 
  Country: None (occurrence: None)
  Receive Date: 20100309
  Receipt Date: 20100302
  Transmission Date: 20100710
  Serious: Yes (Congenital Anomaly)
  Sender: FDA-Public Use
  Company Number: US-RB-002120-10

PATIENT
  Sex: Male

DRUGS (1)
  1. SUBUTEX [Suspect]
     Route: 065
     Dates: start: 20071101, end: 20080815

REACTIONS (3)
  - CEREBRAL CYST [None]
  - DRUG EXPOSURE DURING PREGNANCY [None]
  - PITUITARY ENLARGEMENT [None]
